FAERS Safety Report 8362870-4 (Version None)
Quarter: 2012Q2

REPORT INFORMATION
  Report Type: 
  Country: None (occurrence: None)
  Receive Date: 20120516
  Receipt Date: 20110502
  Transmission Date: 20120825
  Serious: No
  Sender: FDA-Public Use
  Company Number: US-MYLANLABS-2011S1009202

PATIENT
  Age: 5 Decade
  Sex: Female

DRUGS (4)
  1. FELODIPINE [Suspect]
     Indication: BLOOD PRESSURE
     Route: 048
     Dates: start: 20110215, end: 20110216
  2. PERCOCET [Concomitant]
  3. ALPRAZOLAM [Concomitant]
  4. ATENOLOL [Concomitant]

REACTIONS (5)
  - HYPERSENSITIVITY [None]
  - DISTURBANCE IN ATTENTION [None]
  - INSOMNIA [None]
  - BRADYCARDIA [None]
  - FEELING ABNORMAL [None]
